FAERS Safety Report 10419969 (Version 1)
Quarter: 2014Q2

REPORT INFORMATION
  Report Type: Spontaneous
  Country: US (occurrence: None)
  Receive Date: 20140620
  Receipt Date: 20140620
  Transmission Date: 20141212
  Serious: Yes (Other)
  Sender: FDA-Public Use
  Company Number: 2007961

PATIENT
  Age: 55 Year
  Sex: 0

DRUGS (8)
  1. VINCRISTINE SULFATE INJECTION, USP, 1MG/ML (VINCRISTINE SULFATE) [Suspect]
     Indication: CHRONIC LYMPHOCYTIC LEUKAEMIA
     Route: 042
     Dates: start: 20130201, end: 20130221
  2. CYTARABINE INJECTION (CYTARABINE) [Suspect]
     Indication: CHRONIC LYMPHOCYTIC LEUKAEMIA
     Dosage: 3 G/M2, D2, D3, 1 HOUR
     Route: 042
     Dates: start: 20130222, end: 20130314
  3. CYTOXAN [Suspect]
     Indication: CHRONIC LYMPHOCYTIC LEUKAEMIA
     Dosage: 300 MG/M2 MILLIGRAM(S)/SQ.METER, 1 HOUR
     Dates: start: 20130201, end: 20130221
  4. DOXORUBICIN [Suspect]
     Indication: CHRONIC LYMPHOCYTIC LEUKAEMIA
     Dosage: 50 MG/M2 MILLIGRAM(S)/SQ.METER, 1 HOUR
     Dates: start: 20130201, end: 20130221
  5. DEXAMETHASONE [Suspect]
     Indication: CHRONIC LYMPHOCYTIC LEUKAEMIA
     Route: 048
     Dates: start: 20130201, end: 20130221
  6. RITUXAN [Suspect]
     Indication: CHRONIC LYMPHOCYTIC LEUKAEMIA
     Dosage: 375 MG/M2 MILLIGRAM(S)/SQ.METER, 1 HOUR
     Route: 042
     Dates: start: 20130201, end: 20130314
  7. METHOTREXATE [Suspect]
     Indication: CHRONIC LYMPHOCYTIC LEUKAEMIA
     Route: 042
     Dates: start: 20130222, end: 20130314
  8. LEUCOVORIN /00566701/ [Suspect]
     Indication: CHRONIC LYMPHOCYTIC LEUKAEMIA
     Dosage: 25 MG MILLIGRAM(S), 1 HOUR
     Route: 048
     Dates: start: 20130222, end: 20130314

REACTIONS (1)
  - Chronic lymphocytic leukaemia [None]
